FAERS Safety Report 8512164-9 (Version None)
Quarter: 2012Q3

REPORT INFORMATION
  Report Type: 
  Country: None (occurrence: None)
  Receive Date: 20120716
  Receipt Date: 20120711
  Transmission Date: 20120928
  Serious: Yes (Other)
  Sender: FDA-Public Use
  Company Number: US-ALLERGAN-1208471US

PATIENT
  Sex: Female

DRUGS (1)
  1. BOTULINUM TOXIN TYPE A [Suspect]
     Indication: MUSCLE STRAIN
     Dosage: UNK
     Dates: start: 20100629, end: 20100629

REACTIONS (9)
  - MUSCULAR WEAKNESS [None]
  - MUSCLE SPASMS [None]
  - FATIGUE [None]
  - JOINT RANGE OF MOTION DECREASED [None]
  - MUSCULOSKELETAL DISCOMFORT [None]
  - SHOULDER DEFORMITY [None]
  - MUSCLE CONTRACTIONS INVOLUNTARY [None]
  - DEPRESSION [None]
  - DRUG INEFFECTIVE [None]
